FAERS Safety Report 8510207-X (Version None)
Quarter: 2012Q3

REPORT INFORMATION
  Report Type: 
  Country: None (occurrence: None)
  Receive Date: 20120713
  Receipt Date: 20120709
  Transmission Date: 20120928
  Serious: Yes (Other)
  Sender: FDA-Public Use
  Company Number: SE-PFIZER INC-2012142911

PATIENT
  Age: 62 Year
  Sex: Female

DRUGS (4)
  1. XANOR - SLOW RELEASE [Concomitant]
     Dosage: 0.5 MG, UNK
  2. VARENICLINE TARTRATE [Suspect]
     Dosage: 1 MG, UNK
     Dates: end: 20120607
  3. ALPRAZOLAM [Concomitant]
     Dosage: UNK
  4. CISORDINOL [Concomitant]

REACTIONS (3)
  - MENTAL DISORDER [None]
  - PANIC DISORDER [None]
  - ANXIETY DISORDER [None]
